FAERS Safety Report 9440190 (Version 2)
Quarter: 2013Q4

REPORT INFORMATION
  Report Type: Report from Study
  Country: JP (occurrence: JP)
  Receive Date: 20130805
  Receipt Date: 20131217
  Transmission Date: 20140711
  Serious: Yes (Hospitalization)
  Sender: FDA-Public Use
  Company Number: PHHY2013JP082728

PATIENT
  Age: 94 Year
  Sex: Female

DRUGS (4)
  1. EXELON [Suspect]
     Indication: DEMENTIA ALZHEIMER^S TYPE
     Dosage: 1.9 MG/24 HOURS (4.5 MG DAILY)
     Route: 062
     Dates: start: 20120915, end: 20121012
  2. EXELON [Suspect]
     Dosage: 4.6 MG/24 HOURS (9 MG DAILY)
     Route: 062
     Dates: start: 20121013, end: 20121109
  3. EXELON [Suspect]
     Dosage: 6.9 MG/24 HOURS (13.5 MG DAILY)
     Route: 062
     Dates: start: 20121110, end: 20130411
  4. GLACTIV [Concomitant]
     Indication: DIABETES MELLITUS
     Dosage: 100 MG, UNK
     Route: 048

REACTIONS (1)
  - Hyperglycaemia [Recovering/Resolving]
